FAERS Safety Report 14023846 (Version 1)
Quarter: 2017Q3

REPORT INFORMATION
  Report Type: Spontaneous
  Country: US (occurrence: None)
  Receive Date: 20170927
  Receipt Date: 20170927
  Transmission Date: 20171128
  Serious: Yes (Disabling, Other)
  Sender: FDA-Public Use
  Company Number: None

PATIENT
  Age: 27 Year
  Sex: Female
  Weight: 63.05 kg

DRUGS (4)
  1. ACETOZIOMIDIDE [Concomitant]
  2. NEXPLANON [Suspect]
     Active Substance: ETONOGESTREL
     Indication: CONTRACEPTION
     Dosage: QUANTITY:1 LNJECTION(S); GIVEN INTO/UNDER THE SKIN?
     Dates: start: 20131204, end: 20160824
  3. LORAZAPAM [Concomitant]
     Active Substance: LORAZEPAM
  4. COLONOPIN [Concomitant]

REACTIONS (2)
  - Idiopathic intracranial hypertension [None]
  - Migraine [None]

NARRATIVE: CASE EVENT DATE: 20151217
